FAERS Safety Report 4750281-X (Version None)
Quarter: 2005Q3

REPORT INFORMATION
  Report Type: 
  Country: None (occurrence: None)
  Receive Date: 20050818
  Receipt Date: 20050809
  Transmission Date: 20060218
  Serious: Yes (Death)
  Sender: FDA-Public Use
  Company Number: HQWYE832310AUG05

PATIENT

DRUGS (4)
  1. RAPAMUNE [Suspect]
     Indication: PROPHYLAXIS AGAINST TRANSPLANT REJECTION
     Dosage: DOSES TO A 12 HR LEVEL OF 10-15 NG/ML
  2. CYCLOSPORINE [Concomitant]
  3. TACROLIMU S9TACROLIMUS) [Concomitant]
  4. PREDNISONE [Concomitant]

REACTIONS (1)
  - BLOOD CREATININE INCREASED [None]
